FAERS Safety Report 8905474 (Version 1)
Quarter: 2012Q4

REPORT INFORMATION
  Report Type: 
  Country: US (occurrence: US)
  Receive Date: 20121112
  Receipt Date: 20121112
  Transmission Date: 20130627
  Serious: Yes (Hospitalization)
  Sender: FDA-Public Use
  Company Number: US-BAYER-2012-116548

PATIENT
  Age: 43 Year
  Sex: Female
  Weight: 124.72 kg

DRUGS (29)
  1. YAZ [Suspect]
  2. YASMIN [Suspect]
     Indication: CONTRACEPTION
  3. OCELLA [Suspect]
  4. LORAZEPAM [Concomitant]
     Dosage: 0.5 mg, UNK
  5. DICYCLOMINE [Concomitant]
     Dosage: 20 mg, UNK
  6. AMOXICILLIN [Concomitant]
     Dosage: 500 mg, UNK
  7. HYDROCODONE W/APAP [Concomitant]
     Dosage: 7.5-500 mg
  8. METOPROLOL [Concomitant]
     Dosage: 50 mg, UNK
  9. SERTRALINE [Concomitant]
     Dosage: 50 mg, UNK
  10. DOCUSATE SODIUM [Concomitant]
     Dosage: 100 mg, UNK
  11. FERROUS SULFATE [Concomitant]
  12. TRIAZOLAM [Concomitant]
     Dosage: 0.125 mg, UNK
  13. PREDNISONE [Concomitant]
     Dosage: 10 mg, UNK
  14. PLAQUENIL [Concomitant]
     Dosage: 200 mg, TID
  15. NAPROXEN [Concomitant]
     Dosage: 500 mg, TID
  16. FLEXERIL [Concomitant]
     Dosage: 10 mg, 3 tablets at bedtime
  17. GABAPENTIN [Concomitant]
     Dosage: 900 mg, TID
  18. PROTONIX [Concomitant]
     Dosage: 40 mg, daily
  19. PROTONIX [Concomitant]
  20. ANTIBIOTICS [Concomitant]
     Indication: COMMUNITY ACQUIRED PNEUMONIA
  21. HYDROXYCHLOROQUINE [Concomitant]
  22. NAPROSYN [Concomitant]
  23. CYCLOBENZAPRINE [Concomitant]
  24. CRYSELLE [Concomitant]
  25. LO/OVRAL [Concomitant]
     Dosage: UNK
     Dates: start: 20090309
  26. LO/OVRAL [Concomitant]
     Dosage: UNK
     Dates: start: 20090928
  27. DILAUDID [Concomitant]
  28. ERGOCALCIFEROL [Concomitant]
  29. OMEPRAZOLE [Concomitant]

REACTIONS (2)
  - Pulmonary embolism [None]
  - Deep vein thrombosis [None]
